FAERS Safety Report 11910505 (Version 1)
Quarter: 2016Q1

REPORT INFORMATION
  Report Type: Spontaneous
  Country: US (occurrence: None)
  Receive Date: 20160111
  Receipt Date: 20160111
  Transmission Date: 20160526
  Serious: Yes (Hospitalization)
  Sender: FDA-Public Use
  Company Number: None

PATIENT
  Age: 36 Year
  Sex: Female

DRUGS (1)
  1. COPAXONE [Suspect]
     Active Substance: GLATIRAMER ACETATE
     Indication: MULTIPLE SCLEROSIS
     Route: 058
     Dates: start: 20151117, end: 20151204

REACTIONS (6)
  - Headache [None]
  - Hemiplegia [None]
  - Facial paralysis [None]
  - Dizziness [None]
  - Sensory loss [None]
  - Flushing [None]

NARRATIVE: CASE EVENT DATE: 20151117
